FAERS Safety Report 4846790-5 (Version None)
Quarter: 2005Q4

REPORT INFORMATION
  Report Type: 
  Country: None (occurrence: None)
  Receive Date: 20051201
  Receipt Date: 20051114
  Transmission Date: 20060501
  Serious: Yes (Hospitalization)
  Sender: FDA-Public Use
  Company Number: US200511000217

PATIENT
  Sex: Male

DRUGS (5)
  1. CYMBALTA [Suspect]
     Dosage: 60 MG, DAILY (1/D)
  2. VALPROIC ACID [Concomitant]
  3. LASIX [Concomitant]
  4. LEVOTHYROXINE SODIUM [Concomitant]
  5. MACROBID [Concomitant]

REACTIONS (5)
  - ANOREXIA [None]
  - BLOOD SODIUM DECREASED [None]
  - DEHYDRATION [None]
  - ORAL INTAKE REDUCED [None]
  - PYREXIA [None]
